FAERS Safety Report 14763106 (Version 4)
Quarter: 2019Q1

REPORT INFORMATION
  Report Type: Report from Study
  Country: IT (occurrence: IT)
  Receive Date: 20180416
  Receipt Date: 20190321
  Transmission Date: 20190417
  Serious: Yes (Hospitalization, Other)
  Sender: FDA-Public Use
  Company Number: IT-VIFOR (INTERNATIONAL) INC.-VIT-2018-03553

PATIENT
  Sex: Male
  Weight: 80 kg

DRUGS (14)
  1. RENVELA [Concomitant]
     Active Substance: SEVELAMER CARBONATE
     Indication: CHRONIC KIDNEY DISEASE
  2. CARDIOASPIRIN [Concomitant]
     Active Substance: ASPIRIN
     Indication: THROMBOSIS PROPHYLAXIS
     Dates: start: 20170529
  3. FERROGRAD [Concomitant]
     Active Substance: FERROUS SULFATE
     Indication: CHRONIC KIDNEY DISEASE
  4. RETACRIT [Concomitant]
     Active Substance: EPOETIN ALFA-EPBX
     Indication: CHRONIC KIDNEY DISEASE
  5. FERROGRAD [Concomitant]
     Active Substance: FERROUS SULFATE
     Indication: NEPHROGENIC ANAEMIA
     Dates: start: 20170529, end: 20171220
  6. ROCALTROL [Concomitant]
     Active Substance: CALCITRIOL
     Indication: HYPERPARATHYROIDISM SECONDARY
     Dates: start: 20170529, end: 20171220
  7. ROCALTROL [Concomitant]
     Active Substance: CALCITRIOL
     Indication: CHRONIC KIDNEY DISEASE
  8. CALCIUM CARBONATE. [Concomitant]
     Active Substance: CALCIUM CARBONATE
     Indication: HYPERPHOSPHATAEMIA
     Dates: start: 20170529, end: 20180118
  9. VELPHORO [Suspect]
     Active Substance: FERRIC OXYHYDROXIDE
     Indication: HYPERPHOSPHATAEMIA
     Route: 048
     Dates: start: 20171231, end: 20180326
  10. PANTOPRAZOLO [Concomitant]
     Active Substance: PANTOPRAZOLE SODIUM
     Indication: PROPHYLAXIS AGAINST GASTROINTESTINAL ULCER
     Dates: start: 20170529
  11. DIBASE [Concomitant]
     Active Substance: CHOLECALCIFEROL
     Indication: VITAMIN D DEFICIENCY
     Dates: start: 20170612, end: 20171231
  12. CALCIUM CARBONATE. [Concomitant]
     Active Substance: CALCIUM CARBONATE
     Indication: CHRONIC KIDNEY DISEASE
     Dates: start: 20170529, end: 20180118
  13. RETACRIT [Concomitant]
     Active Substance: EPOETIN ALFA-EPBX
     Indication: NEPHROGENIC ANAEMIA
     Dates: start: 20170529, end: 20171220
  14. RENVELA [Concomitant]
     Active Substance: SEVELAMER CARBONATE
     Indication: HYPERPHOSPHATAEMIA
     Dates: start: 20170529, end: 20171230

REACTIONS (1)
  - Intestinal obstruction [Recovered/Resolved]

NARRATIVE: CASE EVENT DATE: 20180326
